FAERS Safety Report 8156123-7 (Version None)
Quarter: 2012Q1

REPORT INFORMATION
  Report Type: 
  Country: None (occurrence: None)
  Receive Date: 20120216
  Receipt Date: 20120202
  Transmission Date: 20120608
  Serious: Yes (Death, Life-Threatening)
  Sender: FDA-Public Use
  Company Number: JP-2012-10231

PATIENT
  Age: 85 Year
  Sex: Male
  Weight: 49 kg

DRUGS (14)
  1. LANSOPRAZOLE [Concomitant]
  2. LASIX [Concomitant]
  3. ASPIRIN [Concomitant]
  4. DOBUTREX [Concomitant]
  5. LOSARTAN POTASSIUM [Concomitant]
  6. PLETAL [Concomitant]
  7. ALLOZYM (ALLOPURINOL) TABLET [Concomitant]
  8. LIVALO (PITAVASTATIN CALCIUM) TABLET [Concomitant]
  9. TICLOPIDINE HCL [Concomitant]
  10. TIZANIDINE HYDROCHLORIDE [Concomitant]
  11. LASIX [Suspect]
     Indication: CARDIAC FAILURE
     Dosage: 48 ML MILLILITRE(S), DAILY DOSE, INTRAVENOUS
     Route: 042
  12. SLOW-K [Concomitant]
  13. PREDOPA (DOPAMINE HYDROCHLORIDE) INJECTION [Concomitant]
  14. SAMSCA [Suspect]
     Indication: FLUID RETENTION
     Dosage: 15 MG MILLIGRAM(S), QAM, ORAL
     Route: 048
     Dates: start: 20111228, end: 20120109

REACTIONS (6)
  - DEPRESSED LEVEL OF CONSCIOUSNESS [None]
  - PNEUMONIA [None]
  - CARDIAC FAILURE [None]
  - HYPERKALAEMIA [None]
  - ANURIA [None]
  - CONDITION AGGRAVATED [None]
